FAERS Safety Report 18414735 (Version 1)
Quarter: 2020Q4

REPORT INFORMATION
  Report Type: Spontaneous
  Country: US (occurrence: US)
  Receive Date: 20201022
  Receipt Date: 20201022
  Transmission Date: 20210114
  Serious: Yes (Hospitalization)
  Sender: FDA-Public Use
  Company Number: US-MYLANLABS-2020M1088668

PATIENT
  Age: 23 Year
  Sex: Female
  Weight: 117 kg

DRUGS (6)
  1. EPIDIOLEX [Interacting]
     Active Substance: CANNABIDIOL
     Dosage: 5.8 MILLILITER, BID; 100 MG/ML SOLUTION
     Route: 065
  2. CLOBAZAM. [Suspect]
     Active Substance: CLOBAZAM
     Indication: PARTIAL SEIZURES
     Dosage: 25 MILLIGRAM, AT AM
     Route: 065
  3. EPIDIOLEX [Interacting]
     Active Substance: CANNABIDIOL
     Indication: PARTIAL SEIZURES
     Dosage: 2.9 MILLILITER, BID; 100 MG/ML SOLUTION
     Route: 065
  4. TOPIRAMATE. [Concomitant]
     Active Substance: TOPIRAMATE
     Indication: PARTIAL SEIZURES
     Dosage: 200 MILLIGRAM, BID
     Route: 065
  5. LACOSAMIDE. [Interacting]
     Active Substance: LACOSAMIDE
     Indication: PARTIAL SEIZURES
     Dosage: 150 MILLIGRAM, BID
     Route: 065
  6. CLOBAZAM. [Interacting]
     Active Substance: CLOBAZAM
     Dosage: 30 MILLIGRAM, AT PM
     Route: 065

REACTIONS (3)
  - Rash morbilliform [Recovering/Resolving]
  - Drug interaction [Recovering/Resolving]
  - Type IV hypersensitivity reaction [Recovering/Resolving]
